FAERS Safety Report 5738442-4 (Version None)
Quarter: 2008Q2

REPORT INFORMATION
  Report Type: 
  Country: None (occurrence: None)
  Receive Date: 20080513
  Receipt Date: 20080502
  Transmission Date: 20081010
  Serious: Yes (Hospitalization, Other)
  Sender: FDA-Public Use
  Company Number: 2008BI006001

PATIENT
  Sex: Female

DRUGS (3)
  1. AVONEX [Suspect]
     Indication: MULTIPLE SCLEROSIS
     Dosage: IM
     Route: 030
     Dates: start: 20000802
  2. BACLOFEN [Concomitant]
  3. NOVANTRONE [Concomitant]

REACTIONS (10)
  - ANAEMIA [None]
  - COAGULOPATHY [None]
  - ESCHERICHIA INFECTION [None]
  - IMMOBILE [None]
  - MOBILITY DECREASED [None]
  - PERITONITIS [None]
  - SEPSIS [None]
  - URINARY BLADDER RUPTURE [None]
  - URINARY TRACT INFECTION [None]
  - VENOUS THROMBOSIS [None]
